FAERS Safety Report 7204857-0 (Version None)
Quarter: 2010Q4

REPORT INFORMATION
  Report Type: 
  Country: None (occurrence: None)
  Receive Date: 20101230
  Receipt Date: 20101221
  Transmission Date: 20110411
  Serious: Yes (Other)
  Sender: FDA-Public Use
  Company Number: US-PFIZER INC-2010176832

PATIENT
  Sex: Female
  Weight: 88.889 kg

DRUGS (1)
  1. LYRICA [Suspect]
     Indication: FIBROMYALGIA
     Dosage: 200 MG, 2X/DAY
     Route: 048
     Dates: start: 20080101

REACTIONS (14)
  - DEPRESSION [None]
  - DISSOCIATION [None]
  - FEELING ABNORMAL [None]
  - HEADACHE [None]
  - MOOD SWINGS [None]
  - MUSCULOSKELETAL PAIN [None]
  - OEDEMA PERIPHERAL [None]
  - PAIN [None]
  - PAIN IN EXTREMITY [None]
  - PARANOIA [None]
  - PERSONALITY CHANGE [None]
  - SENSATION OF HEAVINESS [None]
  - TREMOR [None]
  - WEIGHT INCREASED [None]
